FAERS Safety Report 8467780-X (Version None)
Quarter: 2012Q2

REPORT INFORMATION
  Report Type: 
  Country: None (occurrence: None)
  Receive Date: 20120626
  Receipt Date: 20120620
  Transmission Date: 20120825
  Serious: Yes (Hospitalization)
  Sender: FDA-Public Use
  Company Number: GB-ROCHE-1080598

PATIENT
  Sex: Male

DRUGS (9)
  1. SIMVASTATIN [Concomitant]
     Route: 048
  2. AMLODIPINE [Concomitant]
     Route: 048
  3. RAMIPRIL [Concomitant]
  4. AVASTIN [Suspect]
     Indication: GASTRIC CANCER
     Dosage: DATE OF MOST RECENT ADMINISTRATION 01/MAY/2012
     Route: 042
     Dates: start: 20120320
  5. CISPLATIN [Suspect]
     Indication: GASTRIC CANCER
     Dosage: MOST RECENT DOSE OF ADMINISTRATION 01/MAY/2012
     Dates: start: 20120320
  6. XELODA [Suspect]
     Indication: GASTRIC CANCER
     Dosage: MOST RECENT ADMINISTRATION 16/MAY/2012
     Route: 048
     Dates: start: 20120320
  7. LANSOPRAZOLE [Concomitant]
     Route: 048
  8. EPIRUBICIN HYDROCHLORIDE [Suspect]
     Indication: GASTRIC CANCER
     Dosage: MOST RECENT ADMINISTRATION 01/MAY/2012
     Route: 042
     Dates: start: 20120320
  9. DOXAZOSIN MESYLATE [Concomitant]

REACTIONS (1)
  - LETHARGY [None]
